FAERS Safety Report 10441652 (Version 3)
Quarter: 2014Q4

REPORT INFORMATION
  Report Type: Report from Study
  Country: TR (occurrence: TR)
  Receive Date: 20140908
  Receipt Date: 20141021
  Transmission Date: 20150528
  Serious: Yes (Death, Hospitalization)
  Sender: FDA-Public Use
  Company Number: PHHY2013TR105089

PATIENT
  Age: 14 Year
  Sex: Male
  Weight: 35 kg

DRUGS (5)
  1. EXJADE [Suspect]
     Active Substance: DEFERASIROX
     Indication: THALASSAEMIA BETA
     Dosage: 1250 MG, DAILY
     Route: 048
     Dates: start: 2009, end: 20131113
  2. LANSOR [Concomitant]
     Active Substance: LANSOPRAZOLE
     Indication: PRODUCT USED FOR UNKNOWN INDICATION
     Dosage: 15 MG, UNK
     Route: 065
  3. EXJADE [Suspect]
     Active Substance: DEFERASIROX
     Dosage: 375 MG, UNK
     Route: 048
  4. DESFERAL [Suspect]
     Active Substance: DEFEROXAMINE MESYLATE
     Dosage: UNK UKN, UNK
  5. EXJADE [Suspect]
     Active Substance: DEFERASIROX
     Dosage: 750 MG (500 MG IN THE MORNING AND 250 MG IN THE EVENING)
     Route: 048
     Dates: end: 20140425

REACTIONS (4)
  - Abdominal pain upper [Unknown]
  - Serum ferritin increased [Unknown]
  - Gastric ulcer [Unknown]
  - Hepatic failure [Fatal]

NARRATIVE: CASE EVENT DATE: 20140120
